FAERS Safety Report 6123661-8 (Version None)
Quarter: 2009Q1

REPORT INFORMATION
  Report Type: 
  Country: None (occurrence: None)
  Receive Date: 20090319
  Receipt Date: 20090313
  Transmission Date: 20090719
  Serious: Yes (Other)
  Sender: FDA-Public Use
  Company Number: FR-JNJFOC-20090303360

PATIENT
  Age: 31 Year
  Sex: Female

DRUGS (6)
  1. OFLOCET [Suspect]
     Indication: OSTEITIS
     Route: 048
  2. CLAMOXYL [Suspect]
     Indication: OSTEITIS
     Route: 042
  3. DALACINE [Suspect]
     Indication: OSTEITIS
     Route: 048
  4. VANCOMYCINE [Concomitant]
     Indication: OSTEITIS
     Route: 042
  5. TARGOCID [Concomitant]
     Indication: OSTEITIS
     Route: 065
  6. CLAVENTIN [Concomitant]
     Indication: OSTEITIS
     Route: 065

REACTIONS (2)
  - EYELID OEDEMA [None]
  - RASH MACULO-PAPULAR [None]
